FAERS Safety Report 18329415 (Version 1)
Quarter: 2020Q3

REPORT INFORMATION
  Report Type: Spontaneous
  Country: US (occurrence: US)
  Receive Date: 20200930
  Receipt Date: 20200930
  Transmission Date: 20201103
  Serious: Yes (Hospitalization)
  Sender: FDA-Public Use
  Company Number: US-AXELLIA-003391

PATIENT
  Age: 29 Year
  Sex: Male

DRUGS (26)
  1. IBUPROFEN. [Concomitant]
     Active Substance: IBUPROFEN
     Dosage: ONCE ON DAY 1
  2. HEPARIN [Concomitant]
     Active Substance: HEPARIN SODIUM
     Dosage: 5000 UNITS SQ?TWICE A DAY FROM DAY 1?2
     Route: 058
  3. VASOPRESSIN. [Concomitant]
     Active Substance: VASOPRESSIN
     Dosage: CONTINUOUS FROM DAY 1?3
  4. DEXMEDETOMIDINE/DEXMEDETOMIDINE HYDROCHLORIDE [Concomitant]
     Active Substance: DEXMEDETOMIDINE HYDROCHLORIDE
     Dosage: CONTINUOUS FROM DAY 2?3
  5. IODIXANOL. [Concomitant]
     Active Substance: IODIXANOL
     Dosage: ONCE ON DAY 1
  6. SODIUM BICARBONATE. [Concomitant]
     Active Substance: SODIUM BICARBONATE
     Dosage: MULTIPLE
     Route: 040
  7. PARACETAMOL [Concomitant]
     Active Substance: ACETAMINOPHEN
     Dosage: ONCE ON DAY 1
     Route: 042
  8. ALBUMIN [Concomitant]
     Active Substance: ALBUMIN HUMAN
     Dosage: 5% 25 G?ONCE ON DAY 1
  9. PROMETHAZINE [Concomitant]
     Active Substance: PROMETHAZINE HYDROCHLORIDE
     Dosage: ONCE ON DAY 1
     Route: 030
  10. SODIUM CHLORIDE. [Concomitant]
     Active Substance: SODIUM CHLORIDE
     Dosage: MULTIPLE
     Route: 040
  11. SODIUM POLYSTYRENE SULFONATE. [Concomitant]
     Active Substance: SODIUM POLYSTYRENE SULFONATE
     Dosage: MULTIPLE
  12. NOREPINEPHRINE. [Concomitant]
     Active Substance: NOREPINEPHRINE
     Dosage: 1.2MCG/KG/MIN?CONTINUOUS FROM DAY 1?3
  13. MEROPENEM. [Concomitant]
     Active Substance: MEROPENEM
     Dosage: ONCE DAILY FROM DAY 1?3
  14. MAGNESIUM SULFATE. [Concomitant]
     Active Substance: MAGNESIUM SULFATE
     Dosage: ONCE ON DAY 3
  15. LINEZOLID. [Concomitant]
     Active Substance: LINEZOLID
     Dosage: ONCE ON DAY 1
     Route: 042
  16. ASPIRIN. [Concomitant]
     Active Substance: ASPIRIN
     Dosage: ONCE ON DAY 1
  17. MIDODRINE [Concomitant]
     Active Substance: MIDODRINE
     Dosage: 3 TIMES A DAY FROM DAY 1?3
  18. PHENYLEPHRINE [Concomitant]
     Active Substance: PHENYLEPHRINE HYDROCHLORIDE
     Dosage: DRIP CONTINUOUS FROM DAY 1?2
     Route: 041
  19. SODIUM BICARBONATE. [Concomitant]
     Active Substance: SODIUM BICARBONATE
     Dosage: TWICE A DAY FROM DAY 1?3
     Route: 048
  20. HYDROCORTISONE. [Concomitant]
     Active Substance: HYDROCORTISONE
     Dosage: ONCE ON DAY 2
     Route: 042
  21. DAPTOMYCIN. [Suspect]
     Active Substance: DAPTOMYCIN
     Indication: BACTERAEMIA
     Dosage: 6MG/KG EVERY 48 HOURS?450 MG AND 650 MG, ONCE ON DAY 1, ONCE ON DAY 3
  22. CALCIUM CHLORIDE ANHYDROUS/POTASSIUM CHLORIDE/SODIUM LACTATE [Concomitant]
     Dosage: 2 BOLUSES OF 20ML/KG
  23. GLUCOSE [Concomitant]
     Active Substance: DEXTROSE
     Dosage: DEXTROSE INFUSION AND PUSHES
  24. CEFEPIME [Concomitant]
     Active Substance: CEFEPIME HYDROCHLORIDE
     Dosage: ONCE ON DAY 1
  25. FENTANYL. [Concomitant]
     Active Substance: FENTANYL
     Dosage: ONCE ON DAY 1
     Route: 042
  26. DESMOPRESSIN [Concomitant]
     Active Substance: DESMOPRESSIN
     Dosage: ONCE ON DAY 2

REACTIONS (1)
  - Blood creatine phosphokinase increased [Recovered/Resolved]
